FAERS Safety Report 24409448 (Version 1)
Quarter: 2024Q4

REPORT INFORMATION
  Report Type: Spontaneous
  Country: US (occurrence: US)
  Receive Date: 20241008
  Receipt Date: 20241008
  Transmission Date: 20250115
  Serious: Yes (Other)
  Sender: SANDOZ
  Company Number: US-SANDOZ-SDZ2024US082539

PATIENT
  Sex: Female

DRUGS (5)
  1. ALPRAZOLAM [Suspect]
     Active Substance: ALPRAZOLAM
     Indication: Product used for unknown indication
     Dosage: 0.5 MG=1 TAB, ORAL, TID
     Route: 048
  2. BUMETANIDE [Suspect]
     Active Substance: BUMETANIDE
     Indication: Product used for unknown indication
     Dosage: 0.25 MG= 0.5 TAB, ORAL, DAILY, PRN
     Route: 048
  3. ACETAMINOPHEN\HYDROCODONE [Concomitant]
     Active Substance: ACETAMINOPHEN\HYDROCODONE
     Indication: Product used for unknown indication
     Dosage: 325 MG-7.5 MG ORAL TABLET,1 TAB, ORAL, QSHR, PRN
     Route: 048
  4. ELIQUIS [Concomitant]
     Active Substance: APIXABAN
     Indication: Product used for unknown indication
     Dosage: 5 MG= 1 TAB, ORAL, BID, 3 REFILLS
     Route: 048
  5. PREGABALIN [Concomitant]
     Active Substance: PREGABALIN
     Indication: Product used for unknown indication
     Dosage: 75 MG ORAL CAPSULE, 75 MG= 1 CAP, ORAL, TID
     Route: 048

REACTIONS (4)
  - Heart failure with reduced ejection fraction [Recovering/Resolving]
  - Cardiomyopathy [Recovering/Resolving]
  - Atrial fibrillation [Unknown]
  - Obstructive sleep apnoea syndrome [Unknown]
